FAERS Safety Report 15548371 (Version 4)
Quarter: 2018Q4

REPORT INFORMATION
  Report Type: Report from Study
  Country: None (occurrence: CH)
  Receive Date: 20181024
  Receipt Date: 20181201
  Transmission Date: 20190205
  Serious: Yes (Hospitalization)
  Sender: FDA-Public Use
  Company Number: CH-ABBVIE-18S-151-2441675-00

PATIENT
  Age: 70 Year
  Sex: Male

DRUGS (12)
  1. DUODOPA [Suspect]
     Active Substance: CARBIDOPA\LEVODOPA
     Dosage: MD: 8ML?CD: 4.8ML/H?ED: 1ML
     Route: 050
     Dates: start: 20180828, end: 20181001
  2. DUODOPA [Suspect]
     Active Substance: CARBIDOPA\LEVODOPA
     Dosage: MD 8ML?CD 4.2ML/H?ED 1ML
     Route: 050
     Dates: start: 20180718, end: 20180730
  3. DUODOPA [Suspect]
     Active Substance: CARBIDOPA\LEVODOPA
     Dosage: 16H THERAPY?MD 8ML, CR 4.1ML/H, ED 1ML
     Route: 050
     Dates: start: 20180730, end: 20180821
  4. DUODOPA [Suspect]
     Active Substance: CARBIDOPA\LEVODOPA
     Dosage: 16H THERAPY. MD: 7ML, CD: 3.7ML/H, ED: 1ML
     Route: 050
     Dates: start: 20181001, end: 20181012
  5. DUODOPA [Suspect]
     Active Substance: CARBIDOPA\LEVODOPA
     Dosage: MD: 7ML CD: 3.2ML/H ED: 1ML
     Route: 050
     Dates: start: 20181017, end: 20181017
  6. DUODOPA [Suspect]
     Active Substance: CARBIDOPA\LEVODOPA
     Dosage: MD: 7ML CD: 3.0ML/H ED: 1ML
     Route: 050
     Dates: start: 20181017, end: 2018
  7. DUODOPA [Suspect]
     Active Substance: CARBIDOPA\LEVODOPA
     Dosage: MD: 7ML, CD: 4.0ML/H, ED: 1ML
     Route: 050
     Dates: start: 20181012, end: 20181016
  8. PROTEIN SHAKE [Concomitant]
     Indication: PRODUCT USED FOR UNKNOWN INDICATION
     Dosage: 23G OF PROTEIN
  9. DUODOPA [Suspect]
     Active Substance: CARBIDOPA\LEVODOPA
     Dosage: 16H THERAPY?MD: 8ML, CD: 4.5ML/H, ED: 1ML
     Route: 050
     Dates: start: 20180821, end: 20180828
  10. DUODOPA [Suspect]
     Active Substance: CARBIDOPA\LEVODOPA
     Dosage: CD 2.7ML/H
     Route: 050
     Dates: start: 2018
  11. DUODOPA [Suspect]
     Active Substance: CARBIDOPA\LEVODOPA
     Indication: PARKINSON^S DISEASE
     Route: 050
     Dates: start: 20180628, end: 20180718
  12. DUODOPA [Suspect]
     Active Substance: CARBIDOPA\LEVODOPA
     Dosage: MD: 7ML, CD: 3.5ML/H, BETWEEN 10AM AND 4:30PM, ED: 1ML
     Route: 050
     Dates: start: 20181016, end: 20181016

REACTIONS (19)
  - Hyperkinesia [Unknown]
  - Gait disturbance [Not Recovered/Not Resolved]
  - Dysarthria [Recovering/Resolving]
  - Parkinson^s disease [Unknown]
  - On and off phenomenon [Unknown]
  - Wrong technique in device usage process [Recovered/Resolved]
  - Temperature intolerance [Unknown]
  - Dyspnoea [Recovered/Resolved]
  - Fall [Not Recovered/Not Resolved]
  - Dyskinesia [Unknown]
  - Device connection issue [Recovered/Resolved]
  - Defaecation disorder [Recovering/Resolving]
  - Underdose [Unknown]
  - Malaise [Unknown]
  - Freezing phenomenon [Unknown]
  - Overdose [Unknown]
  - Intentional product misuse [Unknown]
  - Dysstasia [Unknown]
  - Pain [Recovering/Resolving]

NARRATIVE: CASE EVENT DATE: 2018
